FAERS Safety Report 19112086 (Version 1)
Quarter: 2021Q2

REPORT INFORMATION
  Report Type: Spontaneous
  Country: US (occurrence: US)
  Receive Date: 20210409
  Receipt Date: 20210409
  Transmission Date: 20210717
  Serious: Yes (Other)
  Sender: FDA-Public Use
  Company Number: US-GLAXOSMITHKLINE-US2021GSK076985

PATIENT
  Sex: Male

DRUGS (8)
  1. RANITIDINE CAPSULE [Suspect]
     Active Substance: RANITIDINE
     Dosage: 150 MG BOTH
     Route: 065
     Dates: start: 200401, end: 202009
  2. RANITIDINE CAPSULE [Suspect]
     Active Substance: RANITIDINE
     Dosage: |BOTH
     Route: 065
     Dates: start: 200401, end: 202009
  3. ZANTAC [Suspect]
     Active Substance: RANITIDINE HYDROCHLORIDE
     Dosage: 150 MG BOTH
     Route: 065
     Dates: start: 200401, end: 202009
  4. ZANTAC [Suspect]
     Active Substance: RANITIDINE HYDROCHLORIDE
     Dosage: |BOTH
     Route: 065
     Dates: start: 200401, end: 202009
  5. ZANTAC [Suspect]
     Active Substance: RANITIDINE HYDROCHLORIDE
     Dosage: |BOTH
     Route: 065
     Dates: start: 200401, end: 202009
  6. ZANTAC [Suspect]
     Active Substance: RANITIDINE HYDROCHLORIDE
     Dosage: 150 MG BOTH
     Route: 065
     Dates: start: 200401, end: 202009
  7. ZANTAC [Suspect]
     Active Substance: RANITIDINE HYDROCHLORIDE
     Dosage: |BOTH
     Route: 065
     Dates: start: 200401, end: 202009
  8. ZANTAC [Suspect]
     Active Substance: RANITIDINE HYDROCHLORIDE
     Dosage: 150 MG BOTH
     Route: 065
     Dates: start: 200401, end: 202009

REACTIONS (2)
  - Renal cancer [Unknown]
  - Hepatic cancer [Unknown]
